FAERS Safety Report 16985221 (Version 1)
Quarter: 2019Q4

REPORT INFORMATION
  Report Type: Spontaneous
  Country: FR (occurrence: FR)
  Receive Date: 20191101
  Receipt Date: 20191101
  Transmission Date: 20200122
  Serious: Yes (Hospitalization)
  Sender: FDA-Public Use
  Company Number: FR-TEVA-2019-FR-1130348

PATIENT
  Age: 86 Year
  Sex: Male
  Weight: 112 kg

DRUGS (2)
  1. ACIDE CLAVULANIQUE [Suspect]
     Active Substance: CLAVULANIC ACID
     Indication: SKIN WOUND
     Route: 048
     Dates: start: 20190916, end: 20190919
  2. AMOXICILLINE [Suspect]
     Active Substance: AMOXICILLIN
     Indication: SKIN WOUND
     Route: 048
     Dates: start: 20190916, end: 20190919

REACTIONS (5)
  - Erythema [Recovering/Resolving]
  - Erythema [Recovering/Resolving]
  - Skin exfoliation [Recovering/Resolving]
  - Rash scarlatiniform [Recovering/Resolving]
  - Blister [Recovering/Resolving]

NARRATIVE: CASE EVENT DATE: 20190919
